FAERS Safety Report 11921721 (Version 1)
Quarter: 2016Q1

REPORT INFORMATION
  Report Type: Spontaneous
  Country: US (occurrence: US)
  Receive Date: 20160115
  Receipt Date: 20160115
  Transmission Date: 20160526
  Serious: No
  Sender: FDA-Public Use
  Company Number: US-SA-2015SA166627

PATIENT
  Age: 73 Year
  Sex: Male

DRUGS (1)
  1. CLOLAR [Suspect]
     Active Substance: CLOFARABINE
     Indication: ACUTE MYELOID LEUKAEMIA
     Dosage: DOSE- 30 MG OF 100 ML
     Route: 041
     Dates: start: 20151015

REACTIONS (4)
  - Dyspnoea [Unknown]
  - Chest pain [Unknown]
  - Tachycardia [Unknown]
  - Product preparation error [Unknown]

NARRATIVE: CASE EVENT DATE: 20151015
